FAERS Safety Report 10142708 (Version 1)
Quarter: 2014Q2

REPORT INFORMATION
  Report Type: Spontaneous
  Country: US (occurrence: None)
  Receive Date: 20140429
  Receipt Date: 20140429
  Transmission Date: 20141212
  Serious: Yes (Hospitalization)
  Sender: FDA-Public Use
  Company Number: None

PATIENT
  Age: 59 Year
  Sex: Female

DRUGS (1)
  1. AFINITOR 10 MG DAILY [Suspect]
     Indication: BREAST CANCER FEMALE
     Route: 048
     Dates: start: 20140212, end: 20140428

REACTIONS (1)
  - Therapy cessation [None]
